FAERS Safety Report 9543898 (Version 3)
Quarter: 2014Q2

REPORT INFORMATION
  Report Type: Spontaneous
  Country: US (occurrence: US)
  Receive Date: 20130923
  Receipt Date: 20140529
  Transmission Date: 20141212
  Serious: Yes (Other)
  Sender: FDA-Public Use
  Company Number: US-PFIZER INC-2013265639

PATIENT
  Sex: Female

DRUGS (2)
  1. CELEBREX [Suspect]
     Indication: ARTHRITIS
     Dosage: UNK
  2. CELEBREX [Suspect]
     Indication: PAIN

REACTIONS (3)
  - Glaucoma [Unknown]
  - Gait disturbance [Unknown]
  - Asthma [Not Recovered/Not Resolved]
